FAERS Safety Report 22059783 (Version 1)
Quarter: 2023Q1

REPORT INFORMATION
  Report Type: Report from Study
  Country: US (occurrence: US)
  Receive Date: 20230303
  Receipt Date: 20230303
  Transmission Date: 20230417
  Serious: Yes (Hospitalization, Other)
  Sender: FDA-Public Use
  Company Number: US-ABBVIE-4325139

PATIENT
  Age: 68 Year
  Sex: Male

DRUGS (2)
  1. DUOPA [Suspect]
     Active Substance: CARBIDOPA\LEVODOPA
     Indication: Parkinson^s disease
     Route: 050
  2. DUOPA [Suspect]
     Active Substance: CARBIDOPA\LEVODOPA

REACTIONS (7)
  - Urinary tract infection [Unknown]
  - Device leakage [Not Recovered/Not Resolved]
  - Skin burning sensation [Recovered/Resolved]
  - Stoma site discharge [Recovered/Resolved]
  - Unevaluable event [Unknown]
  - Sepsis [Unknown]
  - Hallucination [Unknown]

NARRATIVE: CASE EVENT DATE: 20230201
